FAERS Safety Report 6967853-4 (Version None)
Quarter: 2010Q3

REPORT INFORMATION
  Report Type: 
  Country: None (occurrence: None)
  Receive Date: 20100907
  Receipt Date: 20100326
  Transmission Date: 20110219
  Serious: No
  Sender: FDA-Public Use
  Company Number: A0849597A

PATIENT
  Sex: Female

DRUGS (2)
  1. REQUIP [Suspect]
     Indication: PRODUCT USED FOR UNKNOWN INDICATION
     Dosage: 1MG UNKNOWN
     Route: 065
  2. REQUIP [Suspect]
     Dosage: .5MG UNKNOWN
     Route: 065

REACTIONS (2)
  - COUGH [None]
  - NASOPHARYNGITIS [None]
